FAERS Safety Report 17194118 (Version 2)
Quarter: 2020Q2

REPORT INFORMATION
  Report Type: Report from Study
  Country: US (occurrence: US)
  Receive Date: 20191224
  Receipt Date: 20200628
  Transmission Date: 20200713
  Serious: Yes (Other)
  Sender: FDA-Public Use
  Company Number: US-ROCHE-2429776

PATIENT
  Age: 43 Year
  Sex: Female

DRUGS (1)
  1. ATEZOLIZUMAB. [Suspect]
     Active Substance: ATEZOLIZUMAB
     Indication: TRIPLE NEGATIVE BREAST CANCER
     Dosage: OVER 30-60 MINUTES
     Route: 042
     Dates: start: 20180802

REACTIONS (2)
  - Neutrophil count decreased [Unknown]
  - Anaemia [Unknown]
